FAERS Safety Report 21334399 (Version 1)
Quarter: 2022Q3

REPORT INFORMATION
  Report Type: Spontaneous
  Country: US (occurrence: US)
  Receive Date: 20220914
  Receipt Date: 20220914
  Transmission Date: 20221027
  Serious: Yes (Other)
  Sender: FDA-Public Use
  Company Number: US-GLAXOSMITHKLINE-USCH2022GSK032405

PATIENT

DRUGS (1)
  1. ADVIL [Suspect]
     Active Substance: IBUPROFEN
     Indication: Product used for unknown indication
     Dosage: UNK

REACTIONS (15)
  - Stevens-Johnson syndrome [Unknown]
  - Toxic epidermal necrolysis [Unknown]
  - Systemic inflammatory response syndrome [Unknown]
  - Ocular surface disease [Unknown]
  - Trichiasis [Unknown]
  - Dry eye [Unknown]
  - Post-traumatic pain [Unknown]
  - Febrile nonhaemolytic transfusion reaction [Unknown]
  - Urticaria [Unknown]
  - Myopia [Unknown]
  - Conjunctival hyperaemia [Unknown]
  - Astigmatism [Unknown]
  - Meibomian gland dysfunction [Unknown]
  - Rash [Unknown]
  - Superficial inflammatory dermatosis [Unknown]
